FAERS Safety Report 20538518 (Version 1)
Quarter: 2022Q1

REPORT INFORMATION
  Report Type: Spontaneous
  Country: DE (occurrence: DE)
  Receive Date: 20220302
  Receipt Date: 20220302
  Transmission Date: 20220424
  Serious: Yes (Hospitalization)
  Sender: FDA-Public Use
  Company Number: DE-ADRED-07256-01

PATIENT
  Age: 44 Year
  Sex: Female
  Weight: 163 kg

DRUGS (19)
  1. STELARA [Suspect]
     Active Substance: USTEKINUMAB
     Indication: Product used for unknown indication
     Dosage: 90 MG/ML, BREAK, READY-TO-FILL SYRINGE
     Route: 058
  2. STELARA [Suspect]
     Active Substance: USTEKINUMAB
  3. METHOTREXATE [Suspect]
     Active Substance: METHOTREXATE
     Dosage: 12.5 MG/0.31ML, PAUSE, PRE-FILLED SYRINGE
     Route: 058
  4. METFORMIN [Concomitant]
     Active Substance: METFORMIN HYDROCHLORIDE
     Dosage: 1000 MG, 1-0-1-0, TABLET
     Route: 048
  5. FLUTICASONE FUROATE\VILANTEROL TRIFENATATE [Concomitant]
     Active Substance: FLUTICASONE FUROATE\VILANTEROL TRIFENATATE
     Dosage: 92|22 UG, 1-0-0-0, INHALATION POWDER
     Route: 055
  6. NOVORAPID [Concomitant]
     Active Substance: INSULIN ASPART
     Dosage: 300 E./3ML, ACCORDING TO SCHEDULE, READY-TO-FILL SYRINGE
     Route: 058
  7. SALBUHEXAL [Concomitant]
     Active Substance: ALBUTEROL
     Dosage: 0.1 MG, IF REQUIRED, METERED DOSE INHALER
     Route: 055
  8. FOLIC ACID [Concomitant]
     Active Substance: FOLIC ACID
     Dosage: 5 MG, MONDAYS, TABLETS
     Route: 048
  9. NITRENDIPINE [Concomitant]
     Active Substance: NITRENDIPINE
     Dosage: 20 MG, 1-0-1-0, TABLET
     Route: 048
  10. CHOLECALCIFEROL [Concomitant]
     Active Substance: CHOLECALCIFEROL
     Dosage: 20000 IU, SATURDAYS, SOFT CAPSULES
     Route: 048
  11. CANDESARTAN HYDROCHLOROTHIAZIDE ACTAVIS [Concomitant]
     Dosage: 16|12.5 MG, 1-0-0-0, TABLET
     Route: 048
  12. IBUPROFEN [Concomitant]
     Active Substance: IBUPROFEN
     Dosage: 800 MG, IF REQUIRED, TABLETS
     Route: 048
  13. PANTOPRAZOLE [Concomitant]
     Active Substance: PANTOPRAZOLE
     Dosage: 20 MG, 1-0-0-0, TABLET
     Route: 048
  14. PROTAPHANE [Concomitant]
     Active Substance: INSULIN HUMAN
     Dosage: 12.5 MG/0.31ML, PAUSE, FERTIGSPRITZEN?300 I.E./3ML, 0-0-60-0, FERTIGSPRITZEN
     Route: 058
  15. VICTOZA [Concomitant]
     Active Substance: LIRAGLUTIDE
     Dosage: 6 MG/ML, MORNING, READY-TO-FILL SYRINGE
     Route: 058
  16. CANDESARTAN [Concomitant]
     Active Substance: CANDESARTAN
     Dosage: 16 MG, 0-0-1-0, TABLET
     Route: 048
  17. ATORVASTATIN [Concomitant]
     Active Substance: ATORVASTATIN
     Dosage: 20 MG, 0-0-1-0, TABLET
     Route: 048
  18. DULOXETINE HYDROCHLORIDE [Concomitant]
     Active Substance: DULOXETINE HYDROCHLORIDE
     Dosage: 60 MG, 1-0-1-0, TABLET
     Route: 048
  19. EFEROX [Concomitant]
     Active Substance: LEVOTHYROXINE SODIUM
     Dosage: 50 UG, 1-0-0-0, TABLET
     Route: 048

REACTIONS (5)
  - Coronavirus test positive [Unknown]
  - Dyspnoea [Unknown]
  - Cough [Unknown]
  - Dyspnoea exertional [Unknown]
  - Chest discomfort [Unknown]
